FAERS Safety Report 18526012 (Version 2)
Quarter: 2020Q4

REPORT INFORMATION
  Report Type: Spontaneous
  Country: GB (occurrence: GB)
  Receive Date: 20201120
  Receipt Date: 20201124
  Transmission Date: 20210114
  Serious: Yes (Hospitalization, Other)
  Sender: FDA-Public Use
  Company Number: GB-BIOVITRUM-2020GB6359

PATIENT
  Age: 66 Year
  Sex: Female

DRUGS (10)
  1. ANAKINRA [Suspect]
     Active Substance: ANAKINRA
     Indication: IMMUNE EFFECTOR CELL-ASSOCIATED NEUROTOXICITY SYNDROME
     Dosage: 2 DOSES
  2. LACOSAMIDE. [Suspect]
     Active Substance: LACOSAMIDE
     Indication: IMMUNE EFFECTOR CELL-ASSOCIATED NEUROTOXICITY SYNDROME
  3. METHYLPREDNISOLONE. [Suspect]
     Active Substance: METHYLPREDNISOLONE
     Indication: IMMUNE EFFECTOR CELL-ASSOCIATED NEUROTOXICITY SYNDROME
     Dosage: HIGH-DOSE
  4. LEVETIRACETAM. [Suspect]
     Active Substance: LEVETIRACETAM
     Indication: PROPHYLAXIS
     Dosage: 2 DOSES
  5. FLUDARABINE [Concomitant]
     Active Substance: FLUDARABINE PHOSPHATE
     Indication: DIFFUSE LARGE B-CELL LYMPHOMA
     Dosage: UNK
  6. VALPROATE [Suspect]
     Active Substance: VALPROIC ACID
     Indication: IMMUNE EFFECTOR CELL-ASSOCIATED NEUROTOXICITY SYNDROME
  7. CYCLOPHOSPHAMIDE. [Concomitant]
     Active Substance: CYCLOPHOSPHAMIDE
     Indication: DIFFUSE LARGE B-CELL LYMPHOMA REFRACTORY
  8. DEXAMETHASONE. [Concomitant]
     Active Substance: DEXAMETHASONE
     Indication: IMMUNE EFFECTOR CELL-ASSOCIATED NEUROTOXICITY SYNDROME
  9. LEVETIRACETAM. [Suspect]
     Active Substance: LEVETIRACETAM
     Indication: IMMUNE EFFECTOR CELL-ASSOCIATED NEUROTOXICITY SYNDROME
  10. TOCILIZUMAB. [Concomitant]
     Active Substance: TOCILIZUMAB
     Indication: CYTOKINE RELEASE SYNDROME

REACTIONS (3)
  - Multiple-drug resistance [Unknown]
  - Off label use [Unknown]
  - Status epilepticus [Recovering/Resolving]
